FAERS Safety Report 4971102-6 (Version None)
Quarter: 2006Q1

REPORT INFORMATION
  Report Type: 
  Country: None (occurrence: None)
  Receive Date: 20060228
  Receipt Date: 20060131
  Transmission Date: 20060701
  Serious: Yes (Hospitalization)
  Sender: FDA-Public Use
  Company Number: 06P-163-0324558-00

PATIENT

DRUGS (1)
  1. TRICOR [Suspect]

REACTIONS (1)
  - PANCREATITIS [None]
